FAERS Safety Report 4486368-9 (Version None)
Quarter: 2004Q4

REPORT INFORMATION
  Report Type: 
  Country: None (occurrence: None)
  Receive Date: 20041027
  Receipt Date: 20041014
  Transmission Date: 20050328
  Serious: Yes (Death, Life-Threatening)
  Sender: FDA-Public Use
  Company Number: ES-JNJFOC-20041004650

PATIENT
  Age: 58 Year
  Sex: Male

DRUGS (6)
  1. REOPRO [Suspect]
     Route: 042
  2. ACTRAPID [Concomitant]
     Indication: DIABETES MELLITUS
  3. MIDAZOLAM HCL [Concomitant]
  4. ADIRO [Concomitant]
     Route: 049
  5. CLEXANE [Concomitant]
     Route: 049
  6. PLAVIX [Concomitant]
     Route: 049

REACTIONS (2)
  - CARDIOGENIC SHOCK [None]
  - THROMBOCYTOPENIA [None]
